FAERS Safety Report 25830224 (Version 1)
Quarter: 2025Q3

REPORT INFORMATION
  Report Type: Spontaneous
  Country: US (occurrence: US)
  Receive Date: 20250922
  Receipt Date: 20250922
  Transmission Date: 20251020
  Serious: Yes (Other)
  Sender: COOPERSURGICAL
  Company Number: US-COOPERSURGICAL, INC.-2025CPS006732

PATIENT
  Age: 44 Year
  Sex: Female
  Weight: 58.957 kg

DRUGS (1)
  1. PARAGARD T 380A [Suspect]
     Active Substance: COPPER
     Indication: Contraception
     Route: 015
     Dates: start: 20080204

REACTIONS (15)
  - Surgery [Recovered/Resolved]
  - Reproductive complication associated with device [Unknown]
  - Device breakage [Not Recovered/Not Resolved]
  - Foreign body in reproductive tract [Not Recovered/Not Resolved]
  - Complication of device removal [Not Recovered/Not Resolved]
  - Embedded device [Not Recovered/Not Resolved]
  - Anxiety [Not Recovered/Not Resolved]
  - Complication associated with device [Not Recovered/Not Resolved]
  - Post procedural haemorrhage [Not Recovered/Not Resolved]
  - Procedural pain [Not Recovered/Not Resolved]
  - Intentional device use issue [Unknown]
  - Off label use [Unknown]
  - Device dislocation [Not Recovered/Not Resolved]
  - Intermenstrual bleeding [Unknown]
  - Abnormal uterine bleeding [Unknown]

NARRATIVE: CASE EVENT DATE: 20180723
